FAERS Safety Report 18531181 (Version 1)
Quarter: 2020Q4

REPORT INFORMATION
  Report Type: Spontaneous
  Country: US (occurrence: US)
  Receive Date: 20201122
  Receipt Date: 20201122
  Transmission Date: 20210114
  Serious: No
  Sender: FDA-Public Use
  Company Number: US-JNJFOC-20201101905

PATIENT
  Age: 76 Year
  Sex: Female
  Weight: 77.18 kg

DRUGS (3)
  1. XARELTO [Suspect]
     Active Substance: RIVAROXABAN
     Indication: ATRIAL FIBRILLATION
  2. ASPIRIN [ACETYLSALICYLIC ACID] [Suspect]
     Active Substance: ASPIRIN
     Indication: PRODUCT USED FOR UNKNOWN INDICATION
     Route: 065
  3. XARELTO [Suspect]
     Active Substance: RIVAROXABAN
     Indication: CEREBROVASCULAR ACCIDENT PROPHYLAXIS
     Route: 048

REACTIONS (12)
  - Pruritus [Unknown]
  - Impaired healing [Unknown]
  - Confusional state [Recovered/Resolved]
  - Periorbital swelling [Unknown]
  - Eyelid thickening [Unknown]
  - Dizziness [Recovered/Resolved]
  - Wound haemorrhage [Unknown]
  - Arthralgia [Unknown]
  - Skin atrophy [Unknown]
  - Vision blurred [Unknown]
  - Balance disorder [Recovered/Resolved]
  - Headache [Recovered/Resolved]
